FAERS Safety Report 8887496 (Version 1)
Quarter: 2012Q4

REPORT INFORMATION
  Report Type: Spontaneous
  Country: US (occurrence: None)
  Receive Date: 20121101
  Receipt Date: 20121101
  Transmission Date: 20130627
  Serious: Yes (Hospitalization)
  Sender: FDA-Public Use
  Company Number: None

PATIENT
  Age: 78 Year
  Sex: Female
  Weight: 128.8 kg

DRUGS (5)
  1. OMNIPAQUE [Suspect]
     Indication: SCAN WITH CONTRAST
     Dosage: 100 ML ONCE IV
     Route: 042
  2. ETODOLAC [Concomitant]
  3. SYNTHROID [Concomitant]
  4. INSULIN LANTUS [Concomitant]
  5. MMW [Concomitant]

REACTIONS (3)
  - Contrast media reaction [None]
  - Anaphylactic reaction [None]
  - Acute myocardial infarction [None]
